FAERS Safety Report 9145486 (Version 1)
Quarter: 2013Q1

REPORT INFORMATION
  Report Type: Spontaneous
  Country: US (occurrence: None)
  Receive Date: 20130214
  Receipt Date: 20130214
  Transmission Date: 20140127
  Serious: Yes (Death)
  Sender: FDA-Public Use
  Company Number: 2013020064

PATIENT
  Age: 55 Year
  Sex: Female

DRUGS (6)
  1. CARISOPRODOL (CARISOPRODOL) [Suspect]
     Indication: COMPLETED SUICIDE
     Route: 048
  2. ACETAMINOPHEN W/OXYCODONE [Suspect]
     Indication: COMPLETED SUICIDE
     Route: 048
  3. ANGIOTENSIN [Suspect]
     Indication: COMPLETED SUICIDE
     Route: 048
  4. HYDROCODONE W/ACETAMINOPHEN [Suspect]
     Indication: COMPLETED SUICIDE
     Route: 048
  5. ALPRAZOLAM (ALPRAZOLAM) [Suspect]
     Indication: COMPLETED SUICIDE
     Route: 048
  6. LEVOTHYROXINE [Suspect]
     Indication: COMPLETED SUICIDE
     Route: 048

REACTIONS (1)
  - Completed suicide [None]
